FAERS Safety Report 25370978 (Version 1)
Quarter: 2025Q2

REPORT INFORMATION
  Report Type: Spontaneous
  Country: KR (occurrence: KR)
  Receive Date: 20250528
  Receipt Date: 20250528
  Transmission Date: 20250717
  Serious: Yes (Hospitalization)
  Sender: BAXTER
  Company Number: KR-BAXTER-2025BAX016049

PATIENT
  Age: 94 Year
  Sex: Male
  Weight: 51 kg

DRUGS (1)
  1. AMINO ACIDS\DEXTROSE\ELECTROLYTES NOS\SOYBEAN OIL [Suspect]
     Active Substance: AMINO ACIDS\DEXTROSE\ELECTROLYTES NOS\SOYBEAN OIL
     Route: 042
     Dates: start: 20250503, end: 20250514

REACTIONS (4)
  - Dry mouth [Unknown]
  - Decreased appetite [Recovering/Resolving]
  - General physical health deterioration [Recovered/Resolved]
  - Pyrexia [Unknown]
